FAERS Safety Report 6315074-0 (Version None)
Quarter: 2009Q3

REPORT INFORMATION
  Report Type: 
  Country: None (occurrence: None)
  Receive Date: 20090819
  Receipt Date: 20090810
  Transmission Date: 20100115
  Serious: Yes (Other)
  Sender: FDA-Public Use
  Company Number: US-ASTRAZENECA-2009UW21917

PATIENT
  Age: 808 Month
  Sex: Male
  Weight: 87.1 kg

DRUGS (4)
  1. CRESTOR [Suspect]
     Route: 048
     Dates: start: 20080101
  2. SYNTHROID [Concomitant]
  3. FLOMAX [Concomitant]
  4. FLONASE [Concomitant]

REACTIONS (2)
  - DIPLOPIA [None]
  - EYELID DISORDER [None]
